FAERS Safety Report 24734304 (Version 1)
Quarter: 2024Q4

REPORT INFORMATION
  Report Type: Spontaneous
  Country: FR (occurrence: FR)
  Receive Date: 20241214
  Receipt Date: 20241214
  Transmission Date: 20250114
  Serious: No
  Sender: ALKEM
  Company Number: FR-ALKEM LABORATORIES LIMITED-FR-ALKEM-2024-09694

PATIENT
  Age: 13 Year
  Sex: Female

DRUGS (10)
  1. MYCOPHENOLATE MOFETIL [Suspect]
     Active Substance: MYCOPHENOLATE MOFETIL
     Indication: Dermatomyositis
     Dosage: UNK
     Route: 065
  2. HUMAN IMMUNOGLOBULIN G [Suspect]
     Active Substance: HUMAN IMMUNOGLOBULIN G
     Indication: Dermatomyositis
     Dosage: 2 GRAM PER KILOGRAM (THREE CONSECUTIVE DAYS)
     Route: 065
  3. HUMAN IMMUNOGLOBULIN G [Suspect]
     Active Substance: HUMAN IMMUNOGLOBULIN G
     Dosage: 2 GRAM PER KILOGRAM (TWO CONSECUTIVE DAYS)
     Route: 065
  4. PREDNISONE [Suspect]
     Active Substance: PREDNISONE
     Indication: Dermatomyositis
     Dosage: 1.6 MILLIGRAM/KILOGRAM, QD
     Route: 065
  5. PREDNISONE [Suspect]
     Active Substance: PREDNISONE
     Dosage: 0.3 MILLIGRAM/KILOGRAM, QD
     Route: 065
  6. PREDNISONE [Suspect]
     Active Substance: PREDNISONE
     Dosage: 0.9 MILLIGRAM/KILOGRAM, QD
     Route: 065
  7. PREDNISONE [Suspect]
     Active Substance: PREDNISONE
     Dosage: 0.5 MILLIGRAM/KILOGRAM, QD
     Route: 065
  8. PREDNISONE [Suspect]
     Active Substance: PREDNISONE
     Dosage: 0.1 MILLIGRAM/KILOGRAM, QD
     Route: 065
  9. RITUXIMAB [Suspect]
     Active Substance: RITUXIMAB
     Indication: Dermatomyositis
     Dosage: 375 MILLIGRAM/SQ. METER (THREE WEEKLY DOSES)
     Route: 065
  10. RITUXIMAB [Suspect]
     Active Substance: RITUXIMAB
     Dosage: UNK (FOURTH DOSE)
     Route: 065

REACTIONS (1)
  - Therapy non-responder [Unknown]
